FAERS Safety Report 6697977-0 (Version None)
Quarter: 2010Q2

REPORT INFORMATION
  Report Type: 
  Country: None (occurrence: None)
  Receive Date: 20100427
  Receipt Date: 20100420
  Transmission Date: 20101027
  Serious: No
  Sender: FDA-Public Use
  Company Number: 2010BI003964

PATIENT
  Age: 57 Year
  Sex: Female

DRUGS (1)
  1. TYSABRI [Suspect]
     Indication: MULTIPLE SCLEROSIS
     Route: 042
     Dates: start: 20081113

REACTIONS (6)
  - ANXIETY [None]
  - COUGH [None]
  - DYSPNOEA [None]
  - PALPITATIONS [None]
  - POOR VENOUS ACCESS [None]
  - VEIN DISORDER [None]
